FAERS Safety Report 8966051 (Version 1)
Quarter: 2012Q4

REPORT INFORMATION
  Report Type: Spontaneous
  Country: US (occurrence: None)
  Receive Date: 20121212
  Receipt Date: 20121212
  Transmission Date: 20130627
  Serious: No
  Sender: FDA-Public Use
  Company Number: None

PATIENT
  Age: 46 Year
  Sex: Female

DRUGS (1)
  1. AMPHETAMINE SALTS [Suspect]
     Indication: ADHD
     Route: 048
     Dates: start: 20121107, end: 20121206

REACTIONS (3)
  - Drug ineffective [None]
  - Product measured potency issue [None]
  - Product tampering [None]
